FAERS Safety Report 18789559 (Version 4)
Quarter: 2021Q1

REPORT INFORMATION
  Report Type: Report from Study
  Country: DE (occurrence: DE)
  Receive Date: 20210126
  Receipt Date: 20210315
  Transmission Date: 20210419
  Serious: Yes (Other)
  Sender: FDA-Public Use
  Company Number: DE-UCBSA-2021002614

PATIENT
  Sex: Female

DRUGS (3)
  1. METEX [METHOTREXATE SODIUM] [Concomitant]
     Active Substance: METHOTREXATE SODIUM
     Indication: RHEUMATOID ARTHRITIS
     Dosage: 10 MILLIGRAM, WEEKLY (QW)
     Route: 048
     Dates: start: 20121011
  2. CERTOLIZUMAB PEGOL AVA [Suspect]
     Active Substance: CERTOLIZUMAB PEGOL
     Indication: PRODUCT USED FOR UNKNOWN INDICATION
     Dosage: UNK
     Dates: end: 2020
  3. PREDNISOLONE. [Concomitant]
     Active Substance: PREDNISOLONE
     Indication: RHEUMATOID ARTHRITIS
     Dosage: 5 MILLIGRAM, ONE TIME DOSE
     Route: 048
     Dates: start: 20160101

REACTIONS (1)
  - Borrelia infection [Recovering/Resolving]

NARRATIVE: CASE EVENT DATE: 20200808
